FAERS Safety Report 17227005 (Version 1)
Quarter: 2020Q1

REPORT INFORMATION
  Report Type: Spontaneous
  Country: US (occurrence: US)
  Receive Date: 20200103
  Receipt Date: 20200103
  Transmission Date: 20200409
  Serious: No
  Sender: FDA-Public Use
  Company Number: US-SHIRE-US201945427

PATIENT
  Sex: Male
  Weight: 83.9 kg

DRUGS (1)
  1. XIIDRA [Suspect]
     Active Substance: LIFITEGRAST
     Indication: DRY EYE
     Dosage: 1 GTT DROPS, 2X/DAY:BID
     Route: 047
     Dates: start: 2018

REACTIONS (6)
  - Incorrect dose administered [Unknown]
  - Vision blurred [Unknown]
  - Expired product administered [Unknown]
  - Product packaging quantity issue [Unknown]
  - Drug delivery system issue [Unknown]
  - Eye irritation [Unknown]

NARRATIVE: CASE EVENT DATE: 2018
